FAERS Safety Report 9399846 (Version 1)
Quarter: 2013Q3

REPORT INFORMATION
  Report Type: Spontaneous
  Country: US (occurrence: None)
  Receive Date: 20130710
  Receipt Date: 20130710
  Transmission Date: 20140515
  Serious: Yes (Other)
  Sender: FDA-Public Use
  Company Number: B0905774A

PATIENT
  Sex: 0
  Weight: 13.97 kg

DRUGS (1)
  1. ALKERAN [Suspect]
     Indication: RETINOBLASTOMA
     Route: 013

REACTIONS (2)
  - Vitreous haemorrhage [None]
  - Eye excision [None]
